FAERS Safety Report 11253348 (Version 1)
Quarter: 2015Q3

REPORT INFORMATION
  Report Type: Spontaneous
  Country: US (occurrence: US)
  Receive Date: 20150709
  Receipt Date: 20150709
  Transmission Date: 20151125
  Serious: No
  Sender: FDA-Public Use
  Company Number: US-TEVA-559412USA

PATIENT
  Age: 72 Year
  Sex: Female

DRUGS (1)
  1. TRAMADOL. [Suspect]
     Active Substance: TRAMADOL
     Route: 065

REACTIONS (2)
  - Pruritus [Unknown]
  - Drug intolerance [Unknown]

NARRATIVE: CASE EVENT DATE: 20140507
